FAERS Safety Report 26052994 (Version 1)
Quarter: 2025Q4

REPORT INFORMATION
  Report Type: Spontaneous
  Country: AU (occurrence: AU)
  Receive Date: 20251117
  Receipt Date: 20251117
  Transmission Date: 20260118
  Serious: Yes (Hospitalization)
  Sender: BRISTOL-MYERS SQUIBB COMPANY
  Company Number: AU-BRISTOL-MYERS SQUIBB COMPANY-2025-151459

PATIENT
  Age: 60 Year
  Sex: Female

DRUGS (2)
  1. MAVACAMTEN [Suspect]
     Active Substance: MAVACAMTEN
     Indication: Hypertrophic cardiomyopathy
     Route: 048
  2. MAVACAMTEN [Suspect]
     Active Substance: MAVACAMTEN
     Route: 048

REACTIONS (3)
  - Cellulitis [Unknown]
  - Oedema peripheral [Unknown]
  - Left ventricular outflow tract gradient increased [Unknown]
